FAERS Safety Report 4471711-7 (Version None)
Quarter: 2004Q4

REPORT INFORMATION
  Report Type: 
  Country: None (occurrence: None)
  Receive Date: 20041012
  Receipt Date: 20040330
  Transmission Date: 20050328
  Serious: Yes (Life-Threatening, Hospitalization, Disabling)
  Sender: FDA-Public Use
  Company Number: US-ROCHE-363481

PATIENT
  Age: 29 Year
  Sex: Female

DRUGS (11)
  1. ROCEPHIN [Suspect]
     Route: 065
     Dates: start: 20031203, end: 20031203
  2. ZYRTEC [Concomitant]
     Indication: DRUG USE FOR UNKNOWN INDICATION
     Route: 065
     Dates: start: 19990615
  3. PEPCID AC [Concomitant]
     Dates: start: 20040615
  4. TEGRETOL-XR [Concomitant]
     Dosage: 300 MG QAM AND 400 MG QPM
  5. FLOVENT [Concomitant]
     Dosage: FLOVENT 220
  6. ADVAIR DISKUS 100/50 [Concomitant]
     Dosage: ADVAIR 250/50
  7. SEREVENT [Concomitant]
  8. PREDNISONE [Concomitant]
  9. LEVAQUIN [Concomitant]
  10. DUONEB [Concomitant]
  11. TYLENOL [Concomitant]

REACTIONS (24)
  - AGITATION [None]
  - ANAPHYLACTIC SHOCK [None]
  - ANXIETY [None]
  - BLOOD BICARBONATE DECREASED [None]
  - BLOOD CALCIUM DECREASED [None]
  - BLOOD CHLORIDE INCREASED [None]
  - BLOOD GASES ABNORMAL [None]
  - BRADYCARDIA [None]
  - CARDIO-RESPIRATORY ARREST [None]
  - CONSTIPATION [None]
  - EMOTIONAL DISTRESS [None]
  - EOSINOPHIL COUNT DECREASED [None]
  - HAEMATOCRIT DECREASED [None]
  - HAEMOGLOBIN DECREASED [None]
  - HYPOTENSION [None]
  - LYMPHOPENIA [None]
  - METABOLIC ENCEPHALOPATHY [None]
  - NEUTROPHIL COUNT INCREASED [None]
  - PAIN [None]
  - RED BLOOD CELL COUNT DECREASED [None]
  - RESPIRATORY DISTRESS [None]
  - VOMITING [None]
  - WHEEZING [None]
  - WHITE BLOOD CELL COUNT INCREASED [None]
